FAERS Safety Report 5445311-6 (Version None)
Quarter: 2007Q3

REPORT INFORMATION
  Report Type: 
  Country: None (occurrence: None)
  Receive Date: 20070906
  Receipt Date: 20070524
  Transmission Date: 20080115
  Serious: No
  Sender: FDA-Public Use
  Company Number: A0648392A

PATIENT
  Age: 47 Year
  Sex: Female

DRUGS (2)
  1. REQUIP [Suspect]
     Indication: DRUG USE FOR UNKNOWN INDICATION
     Dosage: .5TAB PER DAY
     Route: 048
     Dates: start: 20070412, end: 20070421
  2. CYMBALTA [Concomitant]

REACTIONS (4)
  - DRUG INEFFECTIVE [None]
  - DRY MOUTH [None]
  - HYPERSOMNIA [None]
  - INSOMNIA [None]
